FAERS Safety Report 7789012-8 (Version None)
Quarter: 2011Q3

REPORT INFORMATION
  Report Type: 
  Country: None (occurrence: None)
  Receive Date: 20110930
  Receipt Date: 20110926
  Transmission Date: 20111222
  Serious: Yes (Death, Other)
  Sender: FDA-Public Use
  Company Number: PHHY2011EC57511

PATIENT
  Sex: Male

DRUGS (2)
  1. EXFORGE [Suspect]
     Indication: HYPERTENSION
     Dosage: 160 VAL / 5 AML
     Route: 048
     Dates: start: 20100116
  2. RASILEZ [Suspect]
     Indication: HYPERTENSION
     Dosage: 1 DF/ DAILY
     Route: 048
     Dates: start: 20110213

REACTIONS (2)
  - CARDIAC ARREST [None]
  - HEPATIC NEOPLASM MALIGNANT [None]
